FAERS Safety Report 7457925-2 (Version None)
Quarter: 2011Q2

REPORT INFORMATION
  Report Type: 
  Country: None (occurrence: None)
  Receive Date: 20110504
  Receipt Date: 20110429
  Transmission Date: 20111010
  Serious: Yes (Life-Threatening)
  Sender: FDA-Public Use
  Company Number: FR-PFIZER INC-2011092381

PATIENT
  Age: 20 Year
  Sex: Female

DRUGS (3)
  1. MALOCIDE [Suspect]
     Indication: TOXOPLASMOSIS
     Dosage: 50 KIU, 1X/DAY
     Route: 048
     Dates: start: 20110107, end: 20110125
  2. ZITHROMAX [Suspect]
     Indication: TOXOPLASMOSIS
     Dosage: 1 DF, 1X/DAY
     Route: 048
     Dates: start: 20110107, end: 20110125
  3. SPECIAFOLDINE [Concomitant]
     Indication: TOXOPLASMOSIS
     Dosage: UNK
     Dates: start: 20110107

REACTIONS (3)
  - RASH [None]
  - THROMBOCYTOPENIA [None]
  - LEUKOENCEPHALOPATHY [None]
